FAERS Safety Report 9932921 (Version 1)
Quarter: 2014Q1

REPORT INFORMATION
  Report Type: Spontaneous
  Country: US (occurrence: US)
  Receive Date: 20140228
  Receipt Date: 20140228
  Transmission Date: 20141002
  Serious: No
  Sender: FDA-Public Use
  Company Number: US-GLAXOSMITHKLINE-A1039733A

PATIENT
  Sex: 0

DRUGS (5)
  1. KEPPRA [Suspect]
     Indication: EPILEPSY
     Route: 065
  2. LAMICTAL [Suspect]
     Indication: EPILEPSY
     Route: 065
  3. VIMPAT [Suspect]
     Indication: EPILEPSY
     Route: 065
  4. OXCARBAZEPINE [Suspect]
     Indication: EPILEPSY
     Route: 065
  5. ZONEGRAN [Suspect]
     Indication: EPILEPSY

REACTIONS (3)
  - Hypersensitivity [Unknown]
  - Rash [Unknown]
  - Lymphadenopathy [Unknown]
